FAERS Safety Report 4937131-3 (Version None)
Quarter: 2006Q1

REPORT INFORMATION
  Report Type: 
  Country: None (occurrence: None)
  Receive Date: 20060302
  Receipt Date: 20060215
  Transmission Date: 20060701
  Serious: Yes (Other)
  Sender: FDA-Public Use
  Company Number: DSA_81560_2006

PATIENT
  Age: 30 Year
  Sex: Male

DRUGS (2)
  1. XYREM [Suspect]
     Indication: NARCOLEPSY
     Dosage: 9 G NIGHTLY PO
     Route: 048
     Dates: start: 20051119, end: 20060117
  2. VENLAFAXINE HCL [Concomitant]

REACTIONS (9)
  - AGITATION [None]
  - HYPERHIDROSIS [None]
  - HYPERTENSION [None]
  - INCREASED APPETITE [None]
  - INSOMNIA [None]
  - NAUSEA [None]
  - SEXUAL ACTIVITY INCREASED [None]
  - SKIN BURNING SENSATION [None]
  - VOMITING [None]
